FAERS Safety Report 21032063 (Version 1)
Quarter: 2022Q3

REPORT INFORMATION
  Report Type: Spontaneous
  Country: US (occurrence: US)
  Receive Date: 20220701
  Receipt Date: 20220701
  Transmission Date: 20221027
  Serious: No
  Sender: FDA-Public Use
  Company Number: US-Accord-256256

PATIENT
  Sex: Male
  Weight: 80.74 kg

DRUGS (12)
  1. MYCOPHENOLIC ACID [Suspect]
     Active Substance: MYCOPHENOLIC ACID
     Indication: Product used for unknown indication
     Dosage: DOSE: 500MG /TWICE A DAY
     Route: 048
     Dates: start: 20211205
  2. SPIRIVA [Concomitant]
     Active Substance: TIOTROPIUM BROMIDE MONOHYDRATE
  3. Telmisartan-HCL [Concomitant]
     Dosage: DOSE: 80-12.5MG/ONCE A DAY
  4. Isosorbide Monmonit-ER [Concomitant]
     Dosage: DOSE: 60MG/ONCE A DAY
  5. CARVEDILOL [Concomitant]
     Active Substance: CARVEDILOL
     Dosage: DOSE: 3.125MG/ORAL/TWICE A DAY
  6. ROSUVASTATIN [Concomitant]
     Active Substance: ROSUVASTATIN
     Dosage: DOSE: 40MG/ORAL/ONCE A DAY
  7. IRON [Concomitant]
     Active Substance: IRON
     Dosage: DOSE: 65MG/TWICE A DAY
  8. FAMOTIDINE [Concomitant]
     Active Substance: FAMOTIDINE
     Dosage: DOSE: 10MG/ORAL/ONCE A DAY
  9. ASPIRIN [Concomitant]
     Active Substance: ASPIRIN
     Dosage: DOSE: 81MG
  10. TYLENOL [Concomitant]
     Active Substance: ACETAMINOPHEN
     Dosage: DOSE: 500MG /AS NEEDED
  11. stool softer [Concomitant]
     Dosage: DOSE: TWICE A DAY AS NEEDED
  12. UNSPECIFIED INGREDIENT [Concomitant]
     Active Substance: UNSPECIFIED INGREDIENT
     Dosage: AS NEEDED

REACTIONS (2)
  - Proteinuria [Unknown]
  - Wrong technique in product usage process [Unknown]
